FAERS Safety Report 10580100 (Version 1)
Quarter: 2014Q4

REPORT INFORMATION
  Report Type: Spontaneous
  Country: US (occurrence: US)
  Receive Date: 20141112
  Receipt Date: 20141112
  Transmission Date: 20150529
  Serious: No
  Sender: FDA-Public Use
  Company Number: US-UPSHER-SMITH LABORATORIES, INC.-13004249

PATIENT
  Age: 51 Year
  Sex: Female

DRUGS (5)
  1. IRON [Concomitant]
     Active Substance: IRON
     Dosage: UNK
  2. JANTOVEN [Suspect]
     Active Substance: WARFARIN SODIUM
     Indication: HEART VALVE REPLACEMENT
     Dosage: 6 MG ON TH AND 4 MG ALL OTHER DAYS OF WEEK
     Route: 048
     Dates: start: 2012, end: 201312
  3. JANTOVEN [Suspect]
     Active Substance: WARFARIN SODIUM
     Dosage: 8 MG ONE DAY PER WEEK AND 6 MG ALL OTHER DAYS OF WEEK
     Route: 048
     Dates: start: 201312
  4. VITAMIN D [Concomitant]
     Active Substance: CHOLECALCIFEROL
     Dosage: UNK
  5. FLUDROCORTISONE [Concomitant]
     Active Substance: FLUDROCORTISONE
     Indication: AUTONOMIC NERVOUS SYSTEM IMBALANCE
     Dosage: UNK

REACTIONS (1)
  - International normalised ratio decreased [Unknown]

NARRATIVE: CASE EVENT DATE: 201312
